FAERS Safety Report 16804026 (Version 2)
Quarter: 2019Q3

REPORT INFORMATION
  Report Type: Spontaneous
  Country: US (occurrence: US)
  Receive Date: 20190913
  Receipt Date: 20190927
  Transmission Date: 20191005
  Serious: No
  Sender: FDA-Public Use
  Company Number: US-GLENMARK PHARMACEUTICALS-2019GMK042280

PATIENT

DRUGS (2)
  1. ESTRADIOL VAGINAL INSERTS USP [Suspect]
     Active Substance: ESTRADIOL
     Indication: VULVOVAGINAL DRYNESS
     Dosage: 10 MCG, SINGLE (ONCE WEEKLY)
     Route: 067
     Dates: start: 20190716, end: 20190717
  2. SYNTHROID [Concomitant]
     Active Substance: LEVOTHYROXINE SODIUM
     Indication: HYPOTHYROIDISM
     Dosage: UNK, (EVERY DAY AT UNKNOWN DOSE)
     Route: 065

REACTIONS (5)
  - Product use issue [Unknown]
  - Urethritis noninfective [Recovered/Resolved]
  - Insomnia [Recovered/Resolved]
  - Product substitution issue [Unknown]
  - Pollakiuria [Recovered/Resolved]

NARRATIVE: CASE EVENT DATE: 20190716
